FAERS Safety Report 10568269 (Version 1)
Quarter: 2014Q4

REPORT INFORMATION
  Report Type: Spontaneous
  Country: US (occurrence: None)
  Receive Date: 20141105
  Receipt Date: 20141105
  Transmission Date: 20150529
  Serious: Yes (Hospitalization)
  Sender: FDA-Public Use
  Company Number: None

PATIENT
  Age: 21 Year
  Sex: Male
  Weight: 42.18 kg

DRUGS (1)
  1. STELARA [Suspect]
     Active Substance: USTEKINUMAB
     Indication: CROHN^S DISEASE
     Dosage: 3 VIALS ( 300 MG) IV 1 WEEK 0, 4, 8
     Route: 042

REACTIONS (7)
  - Fistula [None]
  - Acute kidney injury [None]
  - Back pain [None]
  - Nephrolithiasis [None]
  - Crohn^s disease [None]
  - Retroperitoneal abscess [None]
  - Peritoneal disorder [None]

NARRATIVE: CASE EVENT DATE: 20141030
